FAERS Safety Report 8521086-9 (Version None)
Quarter: 2012Q3

REPORT INFORMATION
  Report Type: 
  Country: None (occurrence: None)
  Receive Date: 20120719
  Receipt Date: 20120716
  Transmission Date: 20120928
  Serious: Yes (Other)
  Sender: FDA-Public Use
  Company Number: CA-ROCHE-1078104

PATIENT
  Sex: Male

DRUGS (3)
  1. ADVIL [Concomitant]
  2. DIOVAN [Concomitant]
  3. VEMURAFENIB [Suspect]
     Indication: METASTATIC MALIGNANT MELANOMA
     Route: 048
     Dates: start: 20120401, end: 20120101

REACTIONS (7)
  - DISEASE PROGRESSION [None]
  - MALAISE [None]
  - FATIGUE [None]
  - DRY SKIN [None]
  - ABDOMINAL PAIN UPPER [None]
  - DIARRHOEA [None]
  - HIP ARTHROPLASTY [None]
